FAERS Safety Report 10196393 (Version 2)
Quarter: 2014Q2

REPORT INFORMATION
  Report Type: Spontaneous
  Country: FR (occurrence: FR)
  Receive Date: 20140527
  Receipt Date: 20140625
  Transmission Date: 20141212
  Serious: Yes (Hospitalization)
  Sender: FDA-Public Use
  Company Number: FR-JNJFOC-20140512446

PATIENT
  Age: 56 Year
  Sex: Female
  Weight: 85 kg

DRUGS (13)
  1. XEPLION [Suspect]
     Indication: PSYCHOTIC DISORDER
     Route: 030
     Dates: start: 20131115
  2. RISPERIDONE [Suspect]
     Indication: PSYCHOTIC DISORDER
     Route: 048
  3. RISPERIDONE [Suspect]
     Indication: PSYCHOTIC DISORDER
     Route: 048
     Dates: start: 20131101
  4. TERCIAN [Suspect]
     Indication: PSYCHOTIC DISORDER
     Route: 048
  5. PARKINANE [Suspect]
     Indication: PSYCHOTIC DISORDER
     Route: 048
  6. PARKINANE [Suspect]
     Indication: PSYCHOTIC DISORDER
     Route: 048
     Dates: start: 20131101
  7. CARDENSIEL [Concomitant]
     Indication: HYPERTENSION
     Route: 048
     Dates: start: 20131101
  8. LERCAN [Concomitant]
     Indication: HYPERTENSION
     Route: 048
     Dates: start: 20131101
  9. ESIDREX [Concomitant]
     Indication: HYPERTENSION
     Route: 048
     Dates: start: 20131101
  10. PERINDOPRIL [Concomitant]
     Indication: HYPERTENSION
     Route: 048
     Dates: start: 20131101
  11. EUPRESSYL [Concomitant]
     Indication: HYPERTENSION
     Route: 048
     Dates: start: 20131101
  12. MOVICOL [Concomitant]
     Indication: CONSTIPATION
     Route: 048
     Dates: start: 20131101
  13. LANTUS [Concomitant]
     Indication: TYPE 1 DIABETES MELLITUS
     Route: 058
     Dates: start: 20131101

REACTIONS (3)
  - Phlebitis [Recovering/Resolving]
  - Catatonia [Unknown]
  - Treatment noncompliance [Unknown]
